FAERS Safety Report 14281192 (Version 1)
Quarter: 2017Q4

REPORT INFORMATION
  Report Type: Spontaneous
  Country: CN (occurrence: CN)
  Receive Date: 20171213
  Receipt Date: 20171213
  Transmission Date: 20180321
  Serious: Yes (Other)
  Sender: FDA-Public Use
  Company Number: CN-BAXTER-2017BAX041719

PATIENT
  Age: 41 Year
  Sex: Female
  Weight: 53 kg

DRUGS (2)
  1. METRONIDAZOLE AND SODIUM CHLORIDE INJECTION [Suspect]
     Active Substance: METRONIDAZOLE\SODIUM CHLORIDE
     Indication: ANTIINFLAMMATORY THERAPY
     Dosage: DOSE RE-INTRODUCED
     Route: 041
  2. METRONIDAZOLE AND SODIUM CHLORIDE INJECTION [Suspect]
     Active Substance: METRONIDAZOLE\SODIUM CHLORIDE
     Indication: INFECTION
     Route: 041
     Dates: start: 20170925, end: 20170930

REACTIONS (4)
  - Vomiting [Recovered/Resolved]
  - Haemorrhage [Unknown]
  - Nausea [Recovered/Resolved]
  - Dizziness [Recovering/Resolving]

NARRATIVE: CASE EVENT DATE: 201709
